FAERS Safety Report 19180332 (Version 4)
Quarter: 2022Q2

REPORT INFORMATION
  Report Type: Spontaneous
  Country: US (occurrence: US)
  Receive Date: 20210426
  Receipt Date: 20220422
  Transmission Date: 20220721
  Serious: No
  Sender: FDA-Public Use
  Company Number: US-PFIZER INC-2021436685

PATIENT
  Age: 44 Year
  Sex: Female

DRUGS (1)
  1. CELECOXIB [Suspect]
     Active Substance: CELECOXIB
     Dosage: UNK(100 MG)

REACTIONS (3)
  - Drug ineffective [Unknown]
  - Inflammation [Unknown]
  - Pain in jaw [Not Recovered/Not Resolved]
